FAERS Safety Report 8799197 (Version 1)
Quarter: 2012Q4

REPORT INFORMATION
  Report Type: 
  Country: US (occurrence: US)
  Receive Date: 20120920
  Receipt Date: 20120920
  Transmission Date: 20130627
  Serious: No
  Sender: FDA-Public Use
  Company Number: US-ASTRAZENECA-2012SE23613

PATIENT
  Age: 56 Year
  Sex: Male
  Weight: 91.6 kg

DRUGS (17)
  1. LISINOPRIL [Suspect]
     Route: 048
  2. COUMADIN [Suspect]
     Route: 065
  3. COUMADIN [Suspect]
     Route: 065
  4. ASPIRIN [Concomitant]
  5. TYLENOL [Concomitant]
  6. NITROSTAT [Concomitant]
  7. ALBUTEROL [Concomitant]
  8. FLOMAX [Concomitant]
  9. COREG [Concomitant]
  10. NICOTINE [Concomitant]
  11. ZOLOFT [Concomitant]
  12. BETHANECHOL CHLORIDE [Concomitant]
     Route: 048
  13. PRAVASTATIN SODIUM [Concomitant]
  14. NEURONTIN [Concomitant]
  15. ADVAIR DISKUS [Concomitant]
     Dosage: 250/50 1 PUFF, TWICE DAILY
  16. LASIX [Concomitant]
  17. SOMA [Concomitant]

REACTIONS (10)
  - Hypertension [Unknown]
  - Chronic obstructive pulmonary disease [Unknown]
  - Back pain [Unknown]
  - Oedema peripheral [Unknown]
  - Joint swelling [Unknown]
  - Dizziness [Unknown]
  - Visual impairment [Unknown]
  - Hyperlipidaemia [Unknown]
  - Coronary artery disease [Unknown]
  - Spinal osteoarthritis [Unknown]
